FAERS Safety Report 6280605-6 (Version None)
Quarter: 2009Q3

REPORT INFORMATION
  Report Type: 
  Country: None (occurrence: None)
  Receive Date: 20090724
  Receipt Date: 20080924
  Transmission Date: 20100115
  Serious: No
  Sender: FDA-Public Use
  Company Number: A0749251A

PATIENT
  Age: 62 Year
  Sex: Female

DRUGS (10)
  1. AVANDIA [Suspect]
     Route: 048
     Dates: end: 20070101
  2. AMARYL [Concomitant]
  3. COREG [Concomitant]
  4. ZETIA [Concomitant]
  5. PLAVIX [Concomitant]
  6. COZAAR [Concomitant]
  7. ZOCOR [Concomitant]
  8. ASPIRIN [Concomitant]
     Dosage: 81MG CUMULATIVE DOSE
  9. AMITRIPTYLINE HCL [Concomitant]
  10. VIOXX [Concomitant]

REACTIONS (2)
  - MOVEMENT DISORDER [None]
  - WEIGHT INCREASED [None]
